FAERS Safety Report 9216134 (Version 2)
Quarter: 2013Q2

REPORT INFORMATION
  Report Type: Spontaneous
  Country: CA (occurrence: CA)
  Receive Date: 20130408
  Receipt Date: 20130422
  Transmission Date: 20140414
  Serious: Yes (Hospitalization)
  Sender: FDA-Public Use
  Company Number: CA-JNJFOC-20130400564

PATIENT
  Age: 26 Year
  Sex: Female
  Weight: 56.7 kg

DRUGS (2)
  1. BENYLIN 1 ALL-IN-ONE COLD AND FLU DAY [Suspect]
     Indication: INFLUENZA
     Dosage: 30 ML 1 TIME
     Route: 048
     Dates: start: 20130328, end: 20130328
  2. SYNTHROID [Concomitant]
     Indication: THYROID DISORDER
     Dosage: 1X PER DAY 5+YEARS
     Route: 065

REACTIONS (5)
  - Rash generalised [Recovered/Resolved]
  - Wheezing [Recovered/Resolved]
  - Pruritus [Recovered/Resolved]
  - Rash [Recovered/Resolved]
  - Hot flush [Recovered/Resolved]
